FAERS Safety Report 17932152 (Version 1)
Quarter: 2020Q2

REPORT INFORMATION
  Report Type: Spontaneous
  Country: CA (occurrence: CA)
  Receive Date: 20200623
  Receipt Date: 20200623
  Transmission Date: 20200714
  Serious: Yes (Life-Threatening, Hospitalization)
  Sender: FDA-Public Use
  Company Number: CA-PFIZER INC-2020241635

PATIENT
  Age: 3 Year
  Sex: Female
  Weight: 16 kg

DRUGS (7)
  1. MERCAPTOPURINE. [Concomitant]
     Active Substance: MERCAPTOPURINE
  2. PEGASYS [Concomitant]
     Active Substance: PEGINTERFERON ALFA-2A
  3. VINCRISTINE SULFATE. [Concomitant]
     Active Substance: VINCRISTINE SULFATE
  4. METHOTREXATE SODIUM. [Suspect]
     Active Substance: METHOTREXATE SODIUM
     Indication: ACUTE LYMPHOCYTIC LEUKAEMIA
     Dosage: 12 G ONCE
     Route: 037
  5. METHOTREXATE SODIUM. [Concomitant]
     Active Substance: METHOTREXATE SODIUM
  6. DEXAMETHASONE. [Concomitant]
     Active Substance: DEXAMETHASONE
  7. DAPSONE. [Concomitant]
     Active Substance: DAPSONE

REACTIONS (3)
  - Cough [Recovering/Resolving]
  - Status epilepticus [Recovering/Resolving]
  - Pyrexia [Recovering/Resolving]
